FAERS Safety Report 5451176-9 (Version None)
Quarter: 2007Q3

REPORT INFORMATION
  Report Type: 
  Country: None (occurrence: None)
  Receive Date: 20070913
  Receipt Date: 20070904
  Transmission Date: 20080115
  Serious: Yes (Other)
  Sender: FDA-Public Use
  Company Number: US-JNJFOC-20070900652

PATIENT
  Sex: Female
  Weight: 88 kg

DRUGS (9)
  1. REMICADE [Suspect]
     Indication: RHEUMATOID ARTHRITIS
     Route: 042
  2. DEMADEX [Concomitant]
  3. PLAQUINEL [Concomitant]
     Indication: RHEUMATOID ARTHRITIS
  4. ACTONEL [Concomitant]
     Indication: OSTEOPOROSIS
  5. FOLIC ACID [Concomitant]
  6. MTX [Concomitant]
     Indication: RHEUMATOID ARTHRITIS
  7. CELEBREX [Concomitant]
     Indication: PAIN
  8. COUMADIN [Concomitant]
     Indication: DEEP VEIN THROMBOSIS
  9. POTASSIUM CHLORIDE [Concomitant]

REACTIONS (1)
  - VOCAL CORD PARALYSIS [None]
